FAERS Safety Report 10301182 (Version 12)
Quarter: 2025Q4

REPORT INFORMATION
  Report Type: Spontaneous
  Country: US (occurrence: US)
  Receive Date: 20140714
  Receipt Date: 20251107
  Transmission Date: 20260118
  Serious: Yes (Other)
  Sender: PFIZER
  Company Number: US-PFIZER INC-2014192190

PATIENT
  Age: 49 Year
  Sex: Female
  Weight: 53 kg

DRUGS (10)
  1. PREMARIN [Suspect]
     Active Substance: ESTROGENS, CONJUGATED
     Indication: Hormone replacement therapy
     Dosage: 0.3 MG, UNK
     Route: 048
     Dates: start: 199610
  2. PREMARIN [Suspect]
     Active Substance: ESTROGENS, CONJUGATED
     Dosage: 0.3MG ONE DAY AND 0.625 MG ON THE NEXT DAY, ALTERNATE DAY
     Route: 048
  3. PREMARIN [Suspect]
     Active Substance: ESTROGENS, CONJUGATED
     Dosage: 0.3 MG FIVE DAYS A WEEK AND 0.625 MG TWO DAYS A WEEK
     Route: 048
  4. PREMARIN [Suspect]
     Active Substance: ESTROGENS, CONJUGATED
     Dosage: 0.625 TWO DAYS A WEEK AND 0.3 TAKE THAT PILL 5 DAYS A WEEK, TAKING IT 7 DAYS A WEEK
     Route: 048
  5. PREMARIN [Suspect]
     Active Substance: ESTROGENS, CONJUGATED
     Dosage: 0.625 MG, 2X/WEEK (1 TABLET 2 DAYS A WEEK 90 DAYS)
     Route: 048
  6. PREMARIN [Suspect]
     Active Substance: ESTROGENS, CONJUGATED
     Dosage: 0.3 MG (1 TABLET DAILY FIVE TIMES A WEEK 90 DAYS)
     Route: 048
  7. PREMARIN [Suspect]
     Active Substance: ESTROGENS, CONJUGATED
     Dosage: 0.625 MG 2 X WEEK AND 0.3 MG 5 X WEEK
  8. PREMARIN [Suspect]
     Active Substance: ESTROGENS, CONJUGATED
     Dosage: 0.3 MG (FIVE DAYS A WEEK)
  9. PREMARIN [Suspect]
     Active Substance: ESTROGENS, CONJUGATED
     Dosage: 0.625 MG (TAKEN 2 DAYS A WEEK)
  10. SYNTHROID [Concomitant]
     Active Substance: LEVOTHYROXINE SODIUM
     Dosage: 75 UG, 1X/DAY

REACTIONS (7)
  - Hypertension [Unknown]
  - Blood cholesterol increased [Unknown]
  - Depressed mood [Unknown]
  - Feeling abnormal [Unknown]
  - Lack of spontaneous speech [Unknown]
  - Hypoacusis [Unknown]
  - Intentional product misuse [Unknown]

NARRATIVE: CASE EVENT DATE: 20000101
